FAERS Safety Report 18603441 (Version 12)
Quarter: 2021Q1

REPORT INFORMATION
  Report Type: Report from Study
  Country: CA (occurrence: CA)
  Receive Date: 20201210
  Receipt Date: 20210319
  Transmission Date: 20210419
  Serious: Yes (Hospitalization)
  Sender: FDA-Public Use
  Company Number: CA-BIOGEN-2020BI00953443

PATIENT
  Age: 16 Year
  Sex: Female

DRUGS (2)
  1. PLEGRIDY [Suspect]
     Active Substance: PEGINTERFERON BETA-1A
     Indication: RELAPSING-REMITTING MULTIPLE SCLEROSIS
     Route: 058
     Dates: start: 20191102, end: 20201222
  2. TYLENOL [Concomitant]
     Active Substance: ACETAMINOPHEN
     Indication: PRODUCT USED FOR UNKNOWN INDICATION
     Route: 065

REACTIONS (4)
  - Multiple sclerosis relapse [Recovered/Resolved]
  - Drug-induced liver injury [Recovered/Resolved]
  - Hepatic steatosis [Recovered/Resolved]
  - Biliary colic [Not Recovered/Not Resolved]

NARRATIVE: CASE EVENT DATE: 201911
